FAERS Safety Report 8016964-3 (Version None)
Quarter: 2012Q1

REPORT INFORMATION
  Report Type: 
  Country: None (occurrence: None)
  Receive Date: 20120102
  Receipt Date: 20111227
  Transmission Date: 20120608
  Serious: Yes (Other)
  Sender: FDA-Public Use
  Company Number: PHHY2011JP41308

PATIENT
  Age: 54 Year
  Sex: Female

DRUGS (3)
  1. TASIGNA [Interacting]
     Dosage: 600 MG, DAILY
     Route: 048
     Dates: start: 20110701
  2. ANTIHYPERTENSIVES [Interacting]
     Dosage: UNK
  3. TASIGNA [Suspect]
     Indication: CHRONIC MYELOID LEUKAEMIA
     Dosage: 300 MG, DAILY
     Route: 048
     Dates: start: 20110415

REACTIONS (4)
  - ALANINE AMINOTRANSFERASE INCREASED [None]
  - DRUG INTERACTION [None]
  - ASPARTATE AMINOTRANSFERASE INCREASED [None]
  - GINGIVITIS [None]
